FAERS Safety Report 18786654 (Version 1)
Quarter: 2021Q1

REPORT INFORMATION
  Report Type: Spontaneous
  Country: US (occurrence: US)
  Receive Date: 20210125
  Receipt Date: 20210125
  Transmission Date: 20210419
  Serious: Yes (Other)
  Sender: FDA-Public Use
  Company Number: US-PFIZER INC-2021057439

PATIENT
  Sex: Male

DRUGS (1)
  1. BUTORPHANOL TARTRATE. [Suspect]
     Active Substance: BUTORPHANOL TARTRATE
     Dosage: UNK

REACTIONS (4)
  - Hypoacusis [Unknown]
  - Memory impairment [Unknown]
  - Syncope [Unknown]
  - Migraine [Unknown]
